FAERS Safety Report 4417200-7 (Version None)
Quarter: 2004Q3

REPORT INFORMATION
  Report Type: 
  Country: None (occurrence: None)
  Receive Date: 20040806
  Receipt Date: 20040730
  Transmission Date: 20050211
  Serious: Yes (Hospitalization)
  Sender: FDA-Public Use
  Company Number: US-AMGEN-US085604

PATIENT
  Sex: Female

DRUGS (4)
  1. ENBREL [Suspect]
     Indication: PSORIATIC ARTHROPATHY
     Route: 058
     Dates: start: 20040202
  2. SYNTHROID [Concomitant]
     Dates: start: 19840101
  3. MIRAPEX [Concomitant]
     Dates: start: 20020101
  4. ULTRAM [Concomitant]
     Dates: start: 20030101

REACTIONS (1)
  - DIVERTICULITIS [None]
